FAERS Safety Report 19267228 (Version 1)
Quarter: 2021Q2

REPORT INFORMATION
  Report Type: Report from Study
  Country: IT (occurrence: IT)
  Receive Date: 20210517
  Receipt Date: 20210517
  Transmission Date: 20210717
  Serious: Yes (Other)
  Sender: FDA-Public Use
  Company Number: NVSC2021IT105378

PATIENT
  Age: 58 Year
  Sex: Female
  Weight: 65 kg

DRUGS (2)
  1. BAF312 [Suspect]
     Active Substance: SIPONIMOD
     Indication: SECONDARY PROGRESSIVE MULTIPLE SCLEROSIS
     Dosage: 2 MG, QD
     Route: 065
     Dates: start: 20200219, end: 20210123
  2. BAF312 [Suspect]
     Active Substance: SIPONIMOD
     Dosage: 2 MG, QOD
     Route: 065

REACTIONS (2)
  - Breast cancer female [Not Recovered/Not Resolved]
  - Lymphopenia [Recovering/Resolving]

NARRATIVE: CASE EVENT DATE: 20200817
